FAERS Safety Report 9901721 (Version 1)
Quarter: 2020Q3

REPORT INFORMATION
  Report Type: Report from Study
  Country: US (occurrence: US)
  Receive Date: 20140217
  Receipt Date: 20140217
  Transmission Date: 20201105
  Serious: Yes (Death, Hospitalization, Disabling, Other)
  Sender: FDA-Public Use
  Company Number: PHHY2014US014672

PATIENT
  Age: 73 Year
  Sex: Male
  Weight: 186 kg

DRUGS (44)
  1. 5?FLUOROURACIL [Suspect]
     Active Substance: FLUOROURACIL
     Dosage: 3325 MG
     Route: 042
     Dates: start: 20130916
  2. LISINOPRIL. [Concomitant]
     Active Substance: LISINOPRIL
     Indication: BLOOD PRESSURE MEASUREMENT
     Dosage: 5 MG, QD
     Dates: start: 2007, end: 20131113
  3. VITAMIN B COMPLEX [Concomitant]
     Active Substance: CYANOCOBALAMIN\DEXPANTHENOL\NIACINAMIDE\PYRIDOXINE HYDROCHLORIDE\RIBOFLAVIN 5^-PHOSPHATE SODIUM\THIAMINE HYDROCHLORIDE\VITAMIN B COMPLEX
  4. ASPIRIN. [Concomitant]
     Active Substance: ASPIRIN
     Dosage: 81 MG
     Dates: start: 20070101
  5. LEUCOVORIN CALCIUM. [Suspect]
     Active Substance: LEUCOVORIN CALCIUM
     Dosage: 355 MG
     Route: 042
     Dates: start: 20130731
  6. BEVACIZUMAB. [Suspect]
     Active Substance: BEVACIZUMAB
     Indication: COLORECTAL CANCER METASTATIC
     Dosage: 322 MG
     Route: 042
     Dates: start: 20111102
  7. BEVACIZUMAB. [Suspect]
     Active Substance: BEVACIZUMAB
     Dosage: 322 MG
     Route: 042
     Dates: start: 20130731
  8. BEVACIZUMAB. [Suspect]
     Active Substance: BEVACIZUMAB
     Dosage: 322 MG
     Route: 042
     Dates: start: 20131113
  9. PAROXETINE. [Concomitant]
     Active Substance: PAROXETINE
     Indication: DEPRESSION
     Dosage: 20 MG
     Dates: start: 20070101
  10. SIMVASTATIN. [Concomitant]
     Active Substance: SIMVASTATIN
     Indication: BLOOD CHOLESTEROL
     Dosage: 80 MG
     Dates: start: 20070101
  11. METOPROLOL. [Concomitant]
     Active Substance: METOPROLOL
  12. POTASSIUM [Concomitant]
     Active Substance: POTASSIUM
  13. VITAMIN D NOS [Concomitant]
     Active Substance: VITAMIN D NOS
  14. 5?FLUOROURACIL [Suspect]
     Active Substance: FLUOROURACIL
     Dosage: 3325 MG
     Route: 042
     Dates: start: 20130731
  15. 5?FLUOROURACIL [Suspect]
     Active Substance: FLUOROURACIL
     Dosage: 3325 MG
     Route: 042
     Dates: start: 20131127
  16. ONARTUZUMAB. [Suspect]
     Active Substance: ONARTUZUMAB
     Dosage: UNK
     Dates: start: 20131113
  17. ONARTUZUMAB. [Suspect]
     Active Substance: ONARTUZUMAB
     Dosage: UNK
     Dates: start: 20131127
  18. LASIX [Concomitant]
     Active Substance: FUROSEMIDE
     Indication: OEDEMA
     Dosage: 20 MG, BID
     Dates: start: 20130101
  19. OMEPRAZOLE. [Concomitant]
     Active Substance: OMEPRAZOLE
     Dosage: 40 MG
     Dates: start: 2013
  20. SYNTHROID [Concomitant]
     Active Substance: LEVOTHYROXINE SODIUM
     Dosage: 25 UG
     Dates: start: 201312
  21. 5?FLUOROURACIL [Suspect]
     Active Substance: FLUOROURACIL
     Indication: COLORECTAL CANCER METASTATIC
     Dosage: 3325 MG
     Route: 042
     Dates: start: 20111102
  22. 5?FLUOROURACIL [Suspect]
     Active Substance: FLUOROURACIL
     Dosage: 3325 MG
     Route: 042
     Dates: start: 20131113
  23. OXALIPLATIN. [Suspect]
     Active Substance: OXALIPLATIN
     Indication: COLORECTAL CANCER METASTATIC
     Route: 042
     Dates: start: 20111102, end: 20120208
  24. ONARTUZUMAB. [Suspect]
     Active Substance: ONARTUZUMAB
     Indication: COLORECTAL CANCER METASTATIC
     Dosage: UNK
     Route: 042
     Dates: start: 20111102, end: 20130731
  25. BEVACIZUMAB. [Suspect]
     Active Substance: BEVACIZUMAB
     Dosage: 322 MG
     Route: 042
     Dates: start: 20131127
  26. LISINOPRIL. [Concomitant]
     Active Substance: LISINOPRIL
     Dates: start: 20131113
  27. ZOFRAN [Concomitant]
     Active Substance: ONDANSETRON HYDROCHLORIDE
     Indication: NAUSEA
     Dosage: 8 MG, AS REQUIRED
     Dates: start: 20010101, end: 201110
  28. PROTONIX [Concomitant]
     Active Substance: PANTOPRAZOLE SODIUM
     Indication: GASTROOESOPHAGEAL REFLUX DISEASE
     Dosage: 40 MG, QD
     Dates: start: 201312
  29. K?DUR [Concomitant]
     Active Substance: POTASSIUM CHLORIDE
     Indication: VITAMIN K DEFICIENCY
     Dosage: 20 MEQ
     Dates: start: 20130101
  30. LEUCOVORIN CALCIUM. [Suspect]
     Active Substance: LEUCOVORIN CALCIUM
     Indication: COLORECTAL CANCER METASTATIC
     Dosage: 355 MG
     Route: 042
     Dates: start: 20111102
  31. ONARTUZUMAB. [Suspect]
     Active Substance: ONARTUZUMAB
     Dosage: UNK
     Dates: start: 20130731
  32. ONARTUZUMAB. [Suspect]
     Active Substance: ONARTUZUMAB
     Dosage: UNK
     Dates: start: 20130916
  33. FISH OIL [Concomitant]
     Active Substance: FISH OIL
     Dates: start: 2006
  34. LINSEED [Concomitant]
     Dates: start: 20060101
  35. SPIRIVA [Concomitant]
     Active Substance: TIOTROPIUM BROMIDE MONOHYDRATE
     Indication: CHRONIC OBSTRUCTIVE PULMONARY DISEASE
     Dosage: 18 UG
     Dates: start: 20130101
  36. ADVAIR HFA [Concomitant]
     Active Substance: FLUTICASONE PROPIONATE\SALMETEROL XINAFOATE
     Indication: CHRONIC OBSTRUCTIVE PULMONARY DISEASE
     Dosage: 1 DF, QD
     Dates: start: 2013
  37. BEVACIZUMAB. [Suspect]
     Active Substance: BEVACIZUMAB
     Dosage: 322 MG
     Route: 042
     Dates: start: 20130916
  38. MULTIVIT//VITAMINS NOS [Concomitant]
  39. OMEGA 3 [Concomitant]
     Active Substance: OMEGA-3 FATTY ACIDS
  40. LEUCOVORIN CALCIUM. [Suspect]
     Active Substance: LEUCOVORIN CALCIUM
     Dosage: 355 MG
     Route: 042
     Dates: start: 20130916
  41. LEUCOVORIN CALCIUM. [Suspect]
     Active Substance: LEUCOVORIN CALCIUM
     Dosage: 355 MG
     Route: 042
     Dates: start: 20131113
  42. LEUCOVORIN CALCIUM. [Suspect]
     Active Substance: LEUCOVORIN CALCIUM
     Dosage: 355 MG
     Route: 042
     Dates: start: 20131127
  43. COMPAZINE [Concomitant]
     Active Substance: PROCHLORPERAZINE MALEATE
     Indication: NAUSEA
     Dosage: 10 MG, Q8H
     Dates: start: 20110101
  44. SYNTHROID [Concomitant]
     Active Substance: LEVOTHYROXINE SODIUM
     Indication: THYROID DISORDER
     Dosage: 35 MG
     Dates: start: 20130101

REACTIONS (12)
  - Respiratory failure [Fatal]
  - Hypotension [Recovered/Resolved]
  - Musculoskeletal chest pain [Unknown]
  - Pleural effusion [Recovered/Resolved]
  - Generalised oedema [Unknown]
  - Back pain [Unknown]
  - Ascites [Unknown]
  - Fall [Unknown]
  - Dyspnoea [Recovered/Resolved]
  - Spinal compression fracture [Recovering/Resolving]
  - Atelectasis [Unknown]
  - Angiopathy [Recovered/Resolved]

NARRATIVE: CASE EVENT DATE: 20130514
